FAERS Safety Report 6662001-2 (Version None)
Quarter: 2010Q1

REPORT INFORMATION
  Report Type: 
  Country: None (occurrence: None)
  Receive Date: 20100331
  Receipt Date: 20091203
  Transmission Date: 20100710
  Serious: No
  Sender: FDA-Public Use
  Company Number: US-BRISTOL-MYERS SQUIBB COMPANY-14880827

PATIENT
  Age: 72 Year
  Sex: Male
  Weight: 97 kg

DRUGS (4)
  1. ERBITUX [Suspect]
     Indication: COLON CANCER
     Route: 042
     Dates: start: 20090101
  2. IMODIUM [Concomitant]
  3. AMLODIPINE BESYLATE [Concomitant]
  4. METOPROLOL TARTRATE [Concomitant]

REACTIONS (1)
  - RASH [None]
